FAERS Safety Report 12190499 (Version 2)
Quarter: 2017Q1

REPORT INFORMATION
  Report Type: Spontaneous
  Country: FR (occurrence: FR)
  Receive Date: 20160318
  Receipt Date: 20170321
  Transmission Date: 20170428
  Serious: Yes (Hospitalization)
  Sender: FDA-Public Use
  Company Number: FR-ROCHE-1728354

PATIENT
  Age: 24 Year
  Sex: Female

DRUGS (2)
  1. XOLAIR [Suspect]
     Active Substance: OMALIZUMAB
     Indication: ASTHMA
     Dosage: THERAPY STARTED 2011 OR 2012 OR 2013 OR 2014 (UNSPECIFIED DATE)
     Route: 058
     Dates: end: 2014
  2. XOLAIR [Suspect]
     Active Substance: OMALIZUMAB
     Route: 058
     Dates: start: 2015, end: 20160308

REACTIONS (2)
  - Asthmatic crisis [Recovering/Resolving]
  - Maternal exposure during pregnancy [Unknown]
